FAERS Safety Report 12644017 (Version 6)
Quarter: 2018Q2

REPORT INFORMATION
  Report Type: Spontaneous
  Country: US (occurrence: US)
  Receive Date: 20160811
  Receipt Date: 20180405
  Transmission Date: 20180711
  Serious: No
  Sender: FDA-Public Use
  Company Number: PHHY2016US109184

PATIENT
  Sex: Female
  Weight: 82.54 kg

DRUGS (1)
  1. ZOFRAN [Suspect]
     Active Substance: ONDANSETRON HYDROCHLORIDE
     Indication: VOMITING IN PREGNANCY
     Dosage: 4 MG, TID
     Route: 065
     Dates: start: 20030130, end: 20030505

REACTIONS (7)
  - Cough [Unknown]
  - Product use in unapproved indication [Unknown]
  - Uterine spasm [Unknown]
  - Bronchitis [Unknown]
  - Vulvovaginal mycotic infection [Unknown]
  - Abdominal pain [Unknown]
  - Maternal exposure during pregnancy [Unknown]
